FAERS Safety Report 10711779 (Version 1)
Quarter: 2015Q1

REPORT INFORMATION
  Report Type: Spontaneous
  Country: US (occurrence: US)
  Receive Date: 20150114
  Receipt Date: 20150114
  Transmission Date: 20150721
  Serious: Yes (Other)
  Sender: FDA-Public Use
  Company Number: US-TEVA-533663USA

PATIENT
  Age: 50 Year
  Sex: Female

DRUGS (2)
  1. TREANDA [Suspect]
     Active Substance: BENDAMUSTINE HYDROCHLORIDE
     Indication: MANTLE CELL LYMPHOMA
     Route: 065
     Dates: start: 201412
  2. RITUXAN [Concomitant]
     Active Substance: RITUXIMAB
     Dates: start: 201412

REACTIONS (4)
  - Skin discolouration [Unknown]
  - Rash [Recovered/Resolved]
  - Skin exfoliation [Unknown]
  - Stevens-Johnson syndrome [Unknown]

NARRATIVE: CASE EVENT DATE: 20141217
